FAERS Safety Report 11094763 (Version 1)
Quarter: 2015Q2

REPORT INFORMATION
  Report Type: Spontaneous
  Country: US (occurrence: US)
  Receive Date: 20150506
  Receipt Date: 20150506
  Transmission Date: 20150821
  Serious: No
  Sender: FDA-Public Use
  Company Number: US-LEO PHARMA-222320

PATIENT
  Sex: Female

DRUGS (2)
  1. DAIVOBET [Suspect]
     Active Substance: BETAMETHASONE DIPROPIONATE\CALCIPOTRIENE
     Indication: PSORIASIS
     Route: 061
     Dates: end: 201305
  2. DAIVOBET [Suspect]
     Active Substance: BETAMETHASONE DIPROPIONATE\CALCIPOTRIENE
     Indication: SKIN DISORDER

REACTIONS (5)
  - Skin discolouration [Recovering/Resolving]
  - Burning sensation [Recovering/Resolving]
  - Dry skin [Recovering/Resolving]
  - Inappropriate schedule of drug administration [Unknown]
  - Skin haemorrhage [Recovering/Resolving]
